FAERS Safety Report 10534812 (Version 3)
Quarter: 2015Q3

REPORT INFORMATION
  Report Type: Report from Study
  Country: CA (occurrence: CA)
  Receive Date: 20141022
  Receipt Date: 20150911
  Transmission Date: 20151125
  Serious: Yes (Hospitalization)
  Sender: FDA-Public Use
  Company Number: CA-ABBVIE-14K-028-1297551-00

PATIENT
  Age: 57 Year
  Sex: Female
  Weight: 74 kg

DRUGS (2)
  1. HUMIRA [Suspect]
     Active Substance: ADALIMUMAB
     Indication: CROHN^S DISEASE
     Route: 058
     Dates: start: 201401, end: 201404
  2. HUMIRA [Suspect]
     Active Substance: ADALIMUMAB
     Route: 058
     Dates: start: 2014

REACTIONS (9)
  - Subileus [Recovered/Resolved]
  - Intestinal fibrosis [Recovered/Resolved]
  - Gastritis [Recovered/Resolved]
  - Vitamin B12 decreased [Not Recovered/Not Resolved]
  - Strangulated hernia [Not Recovered/Not Resolved]
  - Abdominal distension [Not Recovered/Not Resolved]
  - Postoperative hernia [Not Recovered/Not Resolved]
  - Intestinal obstruction [Unknown]
  - Ileal stenosis [Recovered/Resolved]

NARRATIVE: CASE EVENT DATE: 2014
